FAERS Safety Report 17101651 (Version 1)
Quarter: 2019Q4

REPORT INFORMATION
  Report Type: Spontaneous
  Country: FR (occurrence: FR)
  Receive Date: 20191202
  Receipt Date: 20191202
  Transmission Date: 20200122
  Serious: Yes (Hospitalization)
  Sender: FDA-Public Use
  Company Number: NVSC2019FR047727

PATIENT
  Age: 63 Year
  Sex: Female
  Weight: 66 kg

DRUGS (5)
  1. PARACETAMOL [Suspect]
     Active Substance: ACETAMINOPHEN
     Indication: POISONING DELIBERATE
     Dosage: 4 G, TOTAL
     Route: 048
     Dates: start: 20190215, end: 20190215
  2. LAROXYL [Suspect]
     Active Substance: AMITRIPTYLINE HYDROCHLORIDE
     Indication: POISONING DELIBERATE
     Dosage: 200 MG, TOTAL
     Route: 048
     Dates: start: 20190215, end: 20190215
  3. CODEINE PHOSPHATE [Suspect]
     Active Substance: CODEINE PHOSPHATE
     Indication: POISONING DELIBERATE
     Dosage: 120 MG, TOTAL
     Route: 048
     Dates: start: 20190215, end: 20190215
  4. LEXOMIL [Suspect]
     Active Substance: BROMAZEPAM
     Indication: POISONING DELIBERATE
     Dosage: UNK
     Route: 048
     Dates: start: 20190215, end: 20190215
  5. SERTRALINE [Suspect]
     Active Substance: SERTRALINE HYDROCHLORIDE
     Indication: POISONING DELIBERATE
     Dosage: 200 MG, TOTAL
     Route: 048
     Dates: start: 20190215, end: 20190215

REACTIONS (5)
  - Movement disorder [Recovered/Resolved]
  - Agitation [Recovered/Resolved]
  - Hepatocellular injury [Recovered/Resolved]
  - Confusional state [Recovered/Resolved]
  - Hallucination [Recovered/Resolved]

NARRATIVE: CASE EVENT DATE: 20190215
